FAERS Safety Report 25142852 (Version 1)
Quarter: 2025Q1

REPORT INFORMATION
  Report Type: Report from Study
  Country: US (occurrence: US)
  Receive Date: 20250331
  Receipt Date: 20250331
  Transmission Date: 20250409
  Serious: Yes (Hospitalization)
  Sender: AMNEAL
  Company Number: US-AMNEAL PHARMACEUTICALS-2025-AMRX-00997

PATIENT
  Sex: Male
  Weight: 90.703 kg

DRUGS (4)
  1. CARBIDOPA\LEVODOPA [Suspect]
     Active Substance: CARBIDOPA\LEVODOPA
     Indication: Parkinson^s disease
     Dosage: 23.75-95MG, 04 CAPSULES BY MOUTH THREE TIMES A DAY AT 7:30AM, 1:30PMAND 7:30PM
     Route: 048
  2. CARBIDOPA\LEVODOPA [Suspect]
     Active Substance: CARBIDOPA\LEVODOPA
     Dosage: 23.75-95MG, 05 CAPSULES BY MOUTH THREE TIMES A DAY AT 7:30AM, 1:30PMAND 7:30PM
     Route: 048
     Dates: start: 20220803
  3. CARBIDOPA\LEVODOPA [Suspect]
     Active Substance: CARBIDOPA\LEVODOPA
     Dosage: 04 CAPSULES, 4X/DAY
     Route: 048
     Dates: start: 20240813
  4. CARBIDOPA\LEVODOPA [Suspect]
     Active Substance: CARBIDOPA\LEVODOPA
     Dosage: 23.75/95 MG, 3 /DAY
     Route: 048

REACTIONS (3)
  - Urinary tract infection [Unknown]
  - Psychotic disorder [Unknown]
  - Product use issue [Unknown]
